FAERS Safety Report 11350625 (Version 1)
Quarter: 2015Q3

REPORT INFORMATION
  Report Type: Spontaneous
  Country: AT (occurrence: AT)
  Receive Date: 20150807
  Receipt Date: 20150807
  Transmission Date: 20151125
  Serious: Yes (Other)
  Sender: FDA-Public Use
  Company Number: AT-TEVA-583482ISR

PATIENT
  Sex: Male

DRUGS (1)
  1. QUETIAPINE RATIOPHARM [Suspect]
     Active Substance: QUETIAPINE

REACTIONS (2)
  - Mental disorder [Unknown]
  - Drug dependence [Unknown]
